FAERS Safety Report 4303552-5 (Version None)
Quarter: 2004Q1

REPORT INFORMATION
  Report Type: 
  Country: None (occurrence: None)
  Receive Date: 20040223
  Receipt Date: 20040210
  Transmission Date: 20041129
  Serious: Yes (Other)
  Sender: FDA-Public Use
  Company Number: 2004008788

PATIENT
  Age: 11 Year
  Sex: Male
  Weight: 35.3806 kg

DRUGS (3)
  1. DILANTIN [Suspect]
     Indication: CONVULSION
     Dosage: 150 MG (BID), ORAL
     Route: 048
  2. FELBAMATE (FELBAMATE) [Concomitant]
  3. LANSOPRAZOLE [Concomitant]

REACTIONS (4)
  - ANTICONVULSANT TOXICITY [None]
  - DEHYDRATION [None]
  - PHARMACEUTICAL PRODUCT COMPLAINT [None]
  - VOMITING [None]
